FAERS Safety Report 5347383-6 (Version None)
Quarter: 2007Q2

REPORT INFORMATION
  Report Type: 
  Country: None (occurrence: None)
  Receive Date: 20070507
  Receipt Date: 20060425
  Transmission Date: 20071010
  Serious: Yes (Other)
  Sender: FDA-Public Use
  Company Number: 27114

PATIENT
  Age: 72 Year
  Sex: Male
  Weight: 72.1219 kg

DRUGS (2)
  1. ADRIAMYCIN PFS [Suspect]
     Indication: LYMPHOMA
     Dosage: IV
     Route: 042
     Dates: start: 20060421
  2. RITUXAN [Concomitant]

REACTIONS (3)
  - APPLICATION SITE ERYTHEMA [None]
  - BURNING SENSATION [None]
  - PRURITUS [None]
